FAERS Safety Report 18204790 (Version 1)
Quarter: 2020Q3

REPORT INFORMATION
  Report Type: Report from Study
  Country: US (occurrence: US)
  Receive Date: 20200828
  Receipt Date: 20200828
  Transmission Date: 20201103
  Serious: Yes (Hospitalization, Other)
  Sender: FDA-Public Use
  Company Number: US-AUROBINDO-AUR-APL-2019-077115

PATIENT
  Age: 2 Year
  Sex: Female

DRUGS (1)
  1. FLECAINIDE [Suspect]
     Active Substance: FLECAINIDE
     Indication: PRODUCT USED FOR UNKNOWN INDICATION
     Dosage: UNK
     Route: 048

REACTIONS (8)
  - Bradycardia [Recovering/Resolving]
  - Accidental exposure to product [Recovering/Resolving]
  - Arrhythmia [Recovering/Resolving]
  - Cardio-respiratory arrest [Recovering/Resolving]
  - Hypotension [Recovering/Resolving]
  - Ventricular arrhythmia [Recovering/Resolving]
  - Electrocardiogram QRS complex prolonged [Recovering/Resolving]
  - Seizure [Recovering/Resolving]
